FAERS Safety Report 23985522 (Version 1)
Quarter: 2024Q2

REPORT INFORMATION
  Report Type: Spontaneous
  Country: US (occurrence: US)
  Receive Date: 20240618
  Receipt Date: 20240618
  Transmission Date: 20240716
  Serious: Yes (Other)
  Sender: FDA-Public Use
  Company Number: US-EUSA PHARMA (UK) LIMITED-2023US000378

PATIENT
  Age: 57 Year
  Sex: Male

DRUGS (1)
  1. SYLVANT [Suspect]
     Active Substance: SILTUXIMAB
     Indication: Castleman^s disease
     Dosage: 11 MG/KG

REACTIONS (1)
  - Neutropenia [Not Recovered/Not Resolved]
